FAERS Safety Report 8539202-1 (Version None)
Quarter: 2012Q3

REPORT INFORMATION
  Report Type: 
  Country: None (occurrence: None)
  Receive Date: 20120716
  Receipt Date: 20120625
  Transmission Date: 20120928
  Serious: Yes (Hospitalization)
  Sender: FDA-Public Use
  Company Number: 2012P1047719

PATIENT
  Age: 33 Year
  Sex: Male

DRUGS (4)
  1. KETOPROFEN [Suspect]
     Indication: CALCULUS URINARY
     Dosage: 100 MG; IV
     Route: 042
     Dates: start: 20120520, end: 20120520
  2. CEFUROXIME SODIUM [Suspect]
     Indication: URINARY TRACT INFECTION
     Dosage: 1.5 GM; IV
     Route: 042
     Dates: start: 20120523, end: 20120528
  3. CILEXETIL [Concomitant]
  4. CANDESARTAN [Concomitant]

REACTIONS (8)
  - ASCITES [None]
  - PLEURAL EFFUSION [None]
  - LIVER INJURY [None]
  - PYREXIA [None]
  - C-REACTIVE PROTEIN INCREASED [None]
  - HEPATIC NECROSIS [None]
  - ALANINE AMINOTRANSFERASE INCREASED [None]
  - ABDOMINAL PAIN UPPER [None]
